FAERS Safety Report 6235191-3 (Version None)
Quarter: 2009Q2

REPORT INFORMATION
  Report Type: 
  Country: None (occurrence: None)
  Receive Date: 20090615
  Receipt Date: 20090608
  Transmission Date: 20091009
  Serious: Yes (Hospitalization)
  Sender: FDA-Public Use
  Company Number: ADR2722009

PATIENT
  Age: 28 Year
  Sex: Male

DRUGS (5)
  1. RAMIPRIL [Suspect]
     Indication: HYPERTONIA
     Dosage: 2.5 MG, ORAL
     Route: 048
     Dates: start: 20080710, end: 20080813
  2. ATACAND [Concomitant]
  3. INSULIN INJECTION [Concomitant]
  4. ISOPHANE [Concomitant]
  5. INSULIN ASPART [Concomitant]

REACTIONS (1)
  - GENERAL PHYSICAL CONDITION ABNORMAL [None]
